FAERS Safety Report 5201139-3 (Version None)
Quarter: 2007Q1

REPORT INFORMATION
  Report Type: 
  Country: None (occurrence: None)
  Receive Date: 20070103
  Receipt Date: 20061215
  Transmission Date: 20070707
  Serious: Yes (Hospitalization)
  Sender: FDA-Public Use
  Company Number: T06-GER-05238-01

PATIENT
  Sex: Male
  Weight: 80 kg

DRUGS (9)
  1. CIPRALEX (ESCITALOPRAM) [Suspect]
     Indication: GENERALISED ANXIETY DISORDER
     Dosage: 10 MG BID PO
     Route: 048
     Dates: start: 20060323, end: 20060621
  2. CIPRALEX (ESCITALOPRAM) [Suspect]
     Indication: MAJOR DEPRESSION
     Dosage: 10 MG BID PO
     Route: 048
     Dates: start: 20060323, end: 20060621
  3. CIPRALEX (ESCITALOPRAM) [Suspect]
     Indication: GENERALISED ANXIETY DISORDER
     Dosage: 5 MG QD PO
     Route: 048
     Dates: start: 20060309, end: 20060322
  4. CIPRALEX (ESCITALOPRAM) [Suspect]
     Indication: MAJOR DEPRESSION
     Dosage: 5 MG QD PO
     Route: 048
     Dates: start: 20060309, end: 20060322
  5. LORAZEPAM [Concomitant]
  6. DOXEPIN HCL [Concomitant]
  7. SEROQUEL [Concomitant]
  8. CARBAMAZEPINE [Concomitant]
  9. INSULIN HUMAN [Concomitant]

REACTIONS (2)
  - DRUG INEFFECTIVE [None]
  - SUICIDE ATTEMPT [None]
